FAERS Safety Report 5215958-0 (Version None)
Quarter: 2007Q1

REPORT INFORMATION
  Report Type: 
  Country: None (occurrence: None)
  Receive Date: 20070123
  Receipt Date: 20070117
  Transmission Date: 20070707
  Serious: Yes (Disabling)
  Sender: FDA-Public Use
  Company Number: 2006AP04637

PATIENT
  Age: 55 Year
  Sex: Male
  Weight: 90 kg

DRUGS (5)
  1. SEROQUEL [Suspect]
     Route: 048
     Dates: start: 20020201, end: 20020601
  2. CITALOPRAM HYDROBROMIDE [Concomitant]
     Indication: DEPRESSION
     Route: 048
     Dates: start: 20010901, end: 20021001
  3. DIAZEPAM [Concomitant]
     Indication: ANXIETY
     Route: 048
     Dates: start: 20010901, end: 20020301
  4. PHENERGAN [Concomitant]
     Indication: INSOMNIA
     Route: 048
     Dates: start: 20010901, end: 20020401
  5. SERC [Concomitant]
     Indication: DIZZINESS
     Route: 048
     Dates: start: 20010901, end: 20030901

REACTIONS (1)
  - ANOSMIA [None]
